FAERS Safety Report 6272788-9 (Version None)
Quarter: 2009Q3

REPORT INFORMATION
  Report Type: 
  Country: None (occurrence: None)
  Receive Date: 20090717
  Receipt Date: 20090708
  Transmission Date: 20100115
  Serious: Yes (Hospitalization)
  Sender: FDA-Public Use
  Company Number: US-B.I. PHARMACEUTICALS,INC./RIDGEFIELD-2009-BP-07405BP

PATIENT
  Sex: Male

DRUGS (12)
  1. MIRAPEX [Suspect]
     Indication: RESTLESS LEGS SYNDROME
     Dosage: 0.75 MG
     Route: 048
     Dates: start: 20090610, end: 20090612
  2. MIRAPEX [Suspect]
     Indication: PARKINSON'S DISEASE
  3. LIPITOR [Concomitant]
  4. ASACOL [Concomitant]
  5. ZYLOPRIM [Concomitant]
  6. ELAVIL [Concomitant]
  7. MELOXICAM [Concomitant]
  8. LIBRAX [Concomitant]
  9. MULTI-VITAMIN [Concomitant]
  10. VITAMIN D [Concomitant]
  11. FISH OIL [Concomitant]
  12. ZINC [Concomitant]

REACTIONS (5)
  - CONDITION AGGRAVATED [None]
  - DRUG INEFFECTIVE [None]
  - DYSKINESIA [None]
  - INSOMNIA [None]
  - MUSCLE SPASMS [None]
